FAERS Safety Report 6608951-4 (Version None)
Quarter: 2010Q1

REPORT INFORMATION
  Report Type: 
  Country: None (occurrence: None)
  Receive Date: 20100301
  Receipt Date: 20100225
  Transmission Date: 20100710
  Serious: Yes (Other)
  Sender: FDA-Public Use
  Company Number: BR-ROXANE LABORATORIES, INC.-2010-RO-00202RO

PATIENT
  Age: 33 Year
  Sex: Male

DRUGS (3)
  1. PREDNISONE [Suspect]
     Indication: RETINAL DETACHMENT
     Dosage: 80 MG
  2. PREDNISONE [Suspect]
     Dosage: 120 MG
  3. METHYLPREDNISOLONE [Suspect]
     Indication: RETINAL DETACHMENT
     Dosage: 1 G

REACTIONS (2)
  - CHORIORETINOPATHY [None]
  - RETINAL DETACHMENT [None]
